FAERS Safety Report 5195121-2 (Version None)
Quarter: 2006Q4

REPORT INFORMATION
  Report Type: 
  Country: None (occurrence: None)
  Receive Date: 20061229
  Receipt Date: 20061115
  Transmission Date: 20070319
  Serious: Yes (Hospitalization)
  Sender: FDA-Public Use
  Company Number: IN-NOVOPROD-258756

PATIENT
  Sex: Female

DRUGS (4)
  1. NOVORAPID FLEXPEN [Suspect]
     Indication: INSULIN-REQUIRING TYPE II DIABETES MELLITUS
     Dosage: 18 IU, QD
     Dates: start: 20061103, end: 20061108
  2. HUMAN MIXTARD 30 [Suspect]
     Indication: INSULIN-REQUIRING TYPE II DIABETES MELLITUS
     Dosage: 40 IU, QD
  3. ORAL ANTIDIABETICS [Concomitant]
     Indication: INSULIN-REQUIRING TYPE II DIABETES MELLITUS
  4. ACTRAPID [Concomitant]
     Dates: start: 20061115

REACTIONS (3)
  - ANGINA PECTORIS [None]
  - BLOOD GLUCOSE INCREASED [None]
  - DRUG INEFFECTIVE [None]
